FAERS Safety Report 15587338 (Version 4)
Quarter: 2019Q1

REPORT INFORMATION
  Report Type: Spontaneous
  Country: ES (occurrence: ES)
  Receive Date: 20181105
  Receipt Date: 20190304
  Transmission Date: 20190417
  Serious: Yes (Hospitalization, Other)
  Sender: FDA-Public Use
  Company Number: ES-MYLANLABS-2018M1082269

PATIENT
  Age: 74 Year
  Sex: Male

DRUGS (12)
  1. TIGECYCLINE. [Suspect]
     Active Substance: TIGECYCLINE
     Indication: MYCOBACTERIUM CHELONAE INFECTION
     Dosage: UNK
  2. AMOXICILLIN AND CLAVULANATE POTASSIUM [Concomitant]
     Active Substance: AMOXICILLIN\CLAVULANATE POTASSIUM
  3. AMIKACIN                           /00391002/ [Concomitant]
     Active Substance: AMIKACIN
     Dosage: UNK
  4. TOBRAMYCIN. [Suspect]
     Active Substance: TOBRAMYCIN
     Indication: ANTIBIOTIC THERAPY
     Dosage: UNK
  5. RIFABUTIN. [Concomitant]
     Active Substance: RIFABUTIN
     Dosage: UNK
  6. AZITHROMYCIN ANHYDROUS. [Suspect]
     Active Substance: AZITHROMYCIN ANHYDROUS
     Indication: MYCOBACTERIUM CHELONAE INFECTION
     Dosage: UNK
  7. TIGECYCLINE. [Suspect]
     Active Substance: TIGECYCLINE
     Dosage: UNK
  8. SIVEXTRO [Suspect]
     Active Substance: TEDIZOLID PHOSPHATE
     Indication: INFECTIVE MESENTERIC PANNICULITIS
     Dosage: UNK
     Route: 048
  9. ACENOCOUMAROL [Concomitant]
     Active Substance: ACENOCOUMAROL
     Indication: PRODUCT USED FOR UNKNOWN INDICATION
     Dosage: UNK
  10. MOXIFLOXACIN. [Suspect]
     Active Substance: MOXIFLOXACIN
     Indication: ANTIBIOTIC THERAPY
     Route: 048
  11. TIGECYCLINE. [Suspect]
     Active Substance: TIGECYCLINE
     Dosage: UNK
  12. TIGECYCLINE. [Suspect]
     Active Substance: TIGECYCLINE
     Dosage: UNK

REACTIONS (7)
  - Pulmonary embolism [Unknown]
  - Mycobacterium chelonae infection [Unknown]
  - Acute kidney injury [Unknown]
  - Pancreatitis acute [Unknown]
  - Product use in unapproved indication [Unknown]
  - Anaemia [Unknown]
  - Neuropathy peripheral [Unknown]
